FAERS Safety Report 9741143 (Version 2)
Quarter: 2014Q1

REPORT INFORMATION
  Report Type: Spontaneous
  Country: US (occurrence: US)
  Receive Date: 20131209
  Receipt Date: 20140116
  Transmission Date: 20141002
  Serious: Yes (Hospitalization)
  Sender: FDA-Public Use
  Company Number: US-GILEAD-2013-0089486

PATIENT
  Age: 73 Year
  Sex: Female

DRUGS (27)
  1. LETAIRIS [Suspect]
     Indication: PULMONARY ARTERIAL HYPERTENSION
     Dosage: 10 MG, QD
     Dates: start: 20101203
  2. LETAIRIS [Suspect]
     Indication: INTERSTITIAL LUNG DISEASE
  3. LISINOPRIL [Concomitant]
  4. MUCINEX [Concomitant]
  5. NASONEX [Concomitant]
  6. OMEPRAZOLE [Concomitant]
  7. PREDNISONE [Concomitant]
  8. PRIMIDONE [Concomitant]
  9. REVATIO [Concomitant]
  10. RECLAST [Concomitant]
  11. VITAMIN B [Concomitant]
  12. VITAMIN D NOS [Concomitant]
  13. CITALOPRAM HYDROBROMIDE [Concomitant]
  14. PRAVASTATIN [Concomitant]
  15. ALBUTEROL                          /00139501/ [Concomitant]
  16. ALPHAGAN [Concomitant]
  17. FUROSEMIDE [Concomitant]
  18. IRON [Concomitant]
  19. KLOR CON [Concomitant]
  20. LEVOTHYROXINE [Concomitant]
  21. CLOTRIMAZOLE [Concomitant]
  22. LIBRAX                             /00033301/ [Concomitant]
  23. ALPRAZOLAN [Concomitant]
  24. ASPIRIN [Concomitant]
  25. AZOPT [Concomitant]
  26. BENZONATATE [Concomitant]
  27. DOXYCYCLINE [Concomitant]

REACTIONS (1)
  - Bronchitis [Recovered/Resolved]
